FAERS Safety Report 10830626 (Version 2)
Quarter: 2015Q1

REPORT INFORMATION
  Report Type: Report from Study
  Country: US (occurrence: US)
  Receive Date: 20150219
  Receipt Date: 20150326
  Transmission Date: 20150721
  Serious: Yes (Other)
  Sender: FDA-Public Use
  Company Number: US-AMGEN-USASL2015014676

PATIENT
  Age: 79 Year
  Sex: Female
  Weight: 64.7 kg

DRUGS (1)
  1. BLINCYTO [Suspect]
     Active Substance: BLINATUMOMAB
     Indication: PRODUCT USED FOR UNKNOWN INDICATION
     Dosage: 9-28 MCG/ML, QD
     Route: 042
     Dates: start: 20150112, end: 20150130

REACTIONS (2)
  - Disease progression [Unknown]
  - Terminal state [Unknown]

NARRATIVE: CASE EVENT DATE: 20150130
